FAERS Safety Report 19812559 (Version 3)
Quarter: 2023Q4

REPORT INFORMATION
  Report Type: Spontaneous
  Country: US (occurrence: US)
  Receive Date: 20210910
  Receipt Date: 20231016
  Transmission Date: 20240110
  Serious: No
  Sender: FDA-Public Use
  Company Number: US-GILEAD-2021-0547303

PATIENT
  Sex: Female
  Weight: 73.469 kg

DRUGS (67)
  1. TRUVADA [Suspect]
     Active Substance: EMTRICITABINE\TENOFOVIR DISOPROXIL FUMARATE
     Indication: HIV infection
     Dosage: UNK
     Route: 048
     Dates: start: 2004
  2. TRUVADA [Suspect]
     Active Substance: EMTRICITABINE\TENOFOVIR DISOPROXIL FUMARATE
     Dosage: UNK
     Route: 048
     Dates: start: 200510, end: 201607
  3. VIREAD [Suspect]
     Active Substance: TENOFOVIR DISOPROXIL FUMARATE
     Indication: HIV infection
     Dosage: UNK
     Route: 065
     Dates: start: 200204, end: 200503
  4. BIKTARVY [Concomitant]
     Active Substance: BICTEGRAVIR SODIUM\EMTRICITABINE\TENOFOVIR ALAFENAMIDE FUMARATE
  5. DESCOVY [Concomitant]
     Active Substance: EMTRICITABINE\TENOFOVIR ALAFENAMIDE FUMARATE
  6. CRIXIVAN [Concomitant]
     Active Substance: INDINAVIR SULFATE
  7. EMTRIVA [Concomitant]
     Active Substance: EMTRICITABINE
  8. EPIVIR [Concomitant]
     Active Substance: LAMIVUDINE
  9. ISENTRESS [Concomitant]
     Active Substance: RALTEGRAVIR POTASSIUM
  10. NORVIR [Concomitant]
     Active Substance: RITONAVIR
  11. REYATAZ [Concomitant]
     Active Substance: ATAZANAVIR SULFATE
  12. SUSTIVA [Concomitant]
     Active Substance: EFAVIRENZ
  13. LEVOFLOXACIN [Concomitant]
     Active Substance: LEVOFLOXACIN
  14. MUCINEX [Concomitant]
     Active Substance: GUAIFENESIN
  15. DICLOFENAC SODIUM [Concomitant]
     Active Substance: DICLOFENAC\DICLOFENAC SODIUM
  16. PRISTIQ EXTENDED-RELEASE [Concomitant]
     Active Substance: DESVENLAFAXINE SUCCINATE
  17. TRAZODONE [Concomitant]
     Active Substance: TRAZODONE HYDROCHLORIDE
  18. AZITHROMYCIN [Concomitant]
     Active Substance: AZITHROMYCIN
  19. HYDROCODONE [Concomitant]
     Active Substance: HYDROCODONE
  20. ADVAIR HFA [Concomitant]
     Active Substance: FLUTICASONE PROPIONATE\SALMETEROL XINAFOATE
  21. CELECOXIB [Concomitant]
     Active Substance: CELECOXIB
  22. SYNTHROID [Concomitant]
     Active Substance: LEVOTHYROXINE SODIUM
  23. VALACYCLOVIR HYDROCHLORIDE [Concomitant]
     Active Substance: VALACYCLOVIR HYDROCHLORIDE
  24. AMOXICILLIN [Concomitant]
     Active Substance: AMOXICILLIN
  25. PROTRIPTYLINE [Concomitant]
     Active Substance: PROTRIPTYLINE
  26. IBUPROFEN [Concomitant]
     Active Substance: IBUPROFEN
  27. TRAMADOL [Concomitant]
     Active Substance: TRAMADOL\TRAMADOL HYDROCHLORIDE
  28. VENLAFAXINE [Concomitant]
     Active Substance: VENLAFAXINE HYDROCHLORIDE
  29. CYPROHEPTADINE [Concomitant]
     Active Substance: CYPROHEPTADINE
  30. ESOMEPRAZOLE [Concomitant]
     Active Substance: ESOMEPRAZOLE
  31. CETIRIZINE [Concomitant]
     Active Substance: CETIRIZINE HYDROCHLORIDE
  32. GABAPENTIN [Concomitant]
     Active Substance: GABAPENTIN
  33. OXYMETAZOLINE [Concomitant]
     Active Substance: OXYMETAZOLINE
  34. ASPIRIN [Concomitant]
     Active Substance: ASPIRIN
  35. OXYCODONE [Concomitant]
     Active Substance: OXYCODONE
  36. ACETAMINOPHEN [Concomitant]
     Active Substance: ACETAMINOPHEN
  37. NAPROXEN [Concomitant]
     Active Substance: NAPROXEN
  38. OSELTAMIVIR [Concomitant]
     Active Substance: OSELTAMIVIR
  39. RISPERIDONE [Concomitant]
     Active Substance: RISPERIDONE
  40. GUAIFENESIN [Concomitant]
     Active Substance: GUAIFENESIN
  41. PRAVASTATIN [Concomitant]
     Active Substance: PRAVASTATIN
  42. ALBUTEROL [Concomitant]
     Active Substance: ALBUTEROL
  43. DESONIDE [Concomitant]
     Active Substance: DESONIDE
  44. LORAZEPAM [Concomitant]
     Active Substance: LORAZEPAM
  45. PROMETHAZINE [Concomitant]
     Active Substance: PROMETHAZINE HYDROCHLORIDE
  46. DIAZEPAM [Concomitant]
     Active Substance: DIAZEPAM
  47. BUMETANIDE [Concomitant]
     Active Substance: BUMETANIDE
  48. PSEUDOEPHEDRINE [Concomitant]
     Active Substance: PSEUDOEPHEDRINE
  49. FLUCONAZOLE [Concomitant]
     Active Substance: FLUCONAZOLE
  50. ATAZANAVIR\RITONAVIR [Concomitant]
     Active Substance: ATAZANAVIR\RITONAVIR
  51. BENZONATATE [Concomitant]
     Active Substance: BENZONATATE
  52. MOMETASONE [Concomitant]
     Active Substance: MOMETASONE
  53. FEXOFENADINE [Concomitant]
     Active Substance: FEXOFENADINE HYDROCHLORIDE
  54. PREDNISONE [Concomitant]
     Active Substance: PREDNISONE
  55. RANITIDINE [Concomitant]
     Active Substance: RANITIDINE
  56. ZOLPIDEM [Concomitant]
     Active Substance: ZOLPIDEM TARTRATE
  57. PENICILLIN [Concomitant]
     Active Substance: PENICILLIN
  58. CEPHALEXIN [Concomitant]
     Active Substance: CEPHALEXIN
  59. FLUOXETINE [Concomitant]
     Active Substance: FLUOXETINE HYDROCHLORIDE
  60. BUPROPION [Concomitant]
     Active Substance: BUPROPION
  61. MIRTAZAPINE [Concomitant]
     Active Substance: MIRTAZAPINE
  62. PREMPRO [Concomitant]
     Active Substance: ESTROGENS, CONJUGATED\MEDROXYPROGESTERONE ACETATE
  63. CITALOPRAM [Concomitant]
     Active Substance: CITALOPRAM HYDROBROMIDE
  64. SERTRALINE [Concomitant]
     Active Substance: SERTRALINE HYDROCHLORIDE
  65. PIROXICAM [Concomitant]
     Active Substance: PIROXICAM
  66. LAMIVUDINE [Concomitant]
     Active Substance: LAMIVUDINE
  67. MODAFINIL [Concomitant]
     Active Substance: MODAFINIL

REACTIONS (7)
  - Osteopenia [Not Recovered/Not Resolved]
  - Bone density decreased [Unknown]
  - Pain [Not Recovered/Not Resolved]
  - Emotional distress [Not Recovered/Not Resolved]
  - Anxiety [Not Recovered/Not Resolved]
  - Anhedonia [Not Recovered/Not Resolved]
  - Depression [Not Recovered/Not Resolved]

NARRATIVE: CASE EVENT DATE: 20060101
